FAERS Safety Report 5403553-X (Version None)
Quarter: 2007Q3

REPORT INFORMATION
  Report Type: 
  Country: None (occurrence: None)
  Receive Date: 20070730
  Receipt Date: 20070713
  Transmission Date: 20080115
  Serious: Yes (Life-Threatening, Hospitalization)
  Sender: FDA-Public Use
  Company Number: GXKR2007ES06041

PATIENT
  Age: 62 Year
  Sex: Male

DRUGS (3)
  1. PRAVASTATIN [Suspect]
     Indication: DYSLIPIDAEMIA
     Dosage: 10 MG,; 20 MG,
  2. EFALIZUMAB (EFALIZUMAB) [Suspect]
     Indication: PSORIASIS
     Dosage: QW, SUBCUTANEOUS
     Route: 058
  3. FOSINOPIRL (FOSINOPRIL) [Concomitant]

REACTIONS (5)
  - DRUG INTERACTION [None]
  - HYPERTHERMIA MALIGNANT [None]
  - HYPONATRAEMIA [None]
  - RENAL FAILURE ACUTE [None]
  - RHABDOMYOLYSIS [None]
